FAERS Safety Report 6438771-5 (Version None)
Quarter: 2009Q4

REPORT INFORMATION
  Report Type: 
  Country: None (occurrence: None)
  Receive Date: 20091113
  Receipt Date: 20091103
  Transmission Date: 20100525
  Serious: Yes (Other)
  Sender: FDA-Public Use
  Company Number: CA-JNJFOC-20091101146

PATIENT
  Sex: Male
  Weight: 104 kg

DRUGS (1)
  1. REMICADE [Suspect]
     Indication: CROHN'S DISEASE
     Dosage: 2 LOADING DOSES RECEIVED ON UNSPECIFIED DATES
     Route: 042

REACTIONS (7)
  - DYSPNOEA EXERTIONAL [None]
  - HYPERAESTHESIA [None]
  - HYPERHIDROSIS [None]
  - MUSCULAR WEAKNESS [None]
  - OEDEMA PERIPHERAL [None]
  - PAIN IN EXTREMITY [None]
  - WEIGHT INCREASED [None]
